FAERS Safety Report 10716648 (Version 1)
Quarter: 2015Q1

REPORT INFORMATION
  Report Type: Spontaneous
  Country: US (occurrence: None)
  Receive Date: 20150115
  Receipt Date: 20150115
  Transmission Date: 20150721
  Serious: Yes (Other)
  Sender: FDA-Public Use
  Company Number: None

PATIENT
  Age: 41 Year
  Sex: Female
  Weight: 86.18 kg

DRUGS (2)
  1. ASACOL [Suspect]
     Active Substance: MESALAMINE
     Indication: CROHN^S DISEASE
     Dosage: 2 PILLS 3 TIMES A DAY, THREE TIMES DAILY
  2. APRISO [Suspect]
     Active Substance: MESALAMINE
     Indication: CROHN^S DISEASE
     Dosage: 2 PILLS 2 TIMES A DAY, TWICE DAILY, TAKEN BY MOUTH
     Route: 048

REACTIONS (18)
  - Nausea [None]
  - Abdominal distension [None]
  - Peripheral swelling [None]
  - Sinus disorder [None]
  - Eye disorder [None]
  - Pelvic cyst [None]
  - Endometriosis [None]
  - Oropharyngeal pain [None]
  - Abdominal pain upper [None]
  - Constipation [None]
  - Arthralgia [None]
  - Pain in extremity [None]
  - Fatigue [None]
  - Alopecia [None]
  - Vomiting [None]
  - Swelling face [None]
  - Headache [None]
  - Back pain [None]

NARRATIVE: CASE EVENT DATE: 20141118
